FAERS Safety Report 8082071-7 (Version None)
Quarter: 2012Q1

REPORT INFORMATION
  Report Type: 
  Country: None (occurrence: None)
  Receive Date: 20120127
  Receipt Date: 20110225
  Transmission Date: 20120608
  Serious: No
  Sender: FDA-Public Use
  Company Number: US-ABBOTT-11P-163-0707814-00

PATIENT
  Age: 24 Year
  Sex: Female

DRUGS (7)
  1. ADDERALL XR 10 [Concomitant]
     Indication: ATTENTION DEFICIT/HYPERACTIVITY DISORDER
  2. BENZOYL [Concomitant]
     Indication: ABDOMINAL PAIN
  3. PREDNISONE TAB [Concomitant]
     Indication: PRODUCT USED FOR UNKNOWN INDICATION
  4. HUMIRA [Suspect]
     Indication: CROHN'S DISEASE
     Dosage: LOADING DOSE
     Dates: start: 20110215
  5. ASACOL HD [Concomitant]
     Indication: CROHN'S DISEASE
  6. ZOLOFT [Concomitant]
     Indication: ANXIETY
  7. UNKNOWN MEDICATION [Concomitant]
     Indication: CONTRACEPTION
     Dosage: DAILY

REACTIONS (2)
  - HYPOAESTHESIA [None]
  - FATIGUE [None]
